FAERS Safety Report 21766887 (Version 4)
Quarter: 2023Q1

REPORT INFORMATION
  Report Type: Spontaneous
  Country: US (occurrence: US)
  Receive Date: 20221222
  Receipt Date: 20230104
  Transmission Date: 20230418
  Serious: Yes (Life-Threatening, Hospitalization, Other)
  Sender: FDA-Public Use
  Company Number: US-MYLANLABS-2021M1034335

PATIENT
  Age: 7 Decade
  Sex: Male

DRUGS (8)
  1. ATORVASTATIN CALCIUM [Interacting]
     Active Substance: ATORVASTATIN CALCIUM
     Indication: Coronary artery disease
     Dosage: 80 MILLIGRAM, QD
     Route: 065
  2. LEVETIRACETAM [Interacting]
     Active Substance: LEVETIRACETAM
     Indication: Epilepsy
     Dosage: 1000 MILLIGRAM, BID
     Route: 065
  3. BACLOFEN [Interacting]
     Active Substance: BACLOFEN
     Dosage: 5 MILLIGRAM, TID,THREE TIMES PER DAY AS NEEDED
     Route: 065
  4. CARVEDILOL [Interacting]
     Active Substance: CARVEDILOL
     Indication: Coronary artery disease
     Dosage: 3.125 MILLIGRAM, BID
     Route: 065
  5. CLONAZEPAM [Interacting]
     Active Substance: CLONAZEPAM
     Indication: Epilepsy
     Dosage: 0.25 MILLIGRAM, BID
     Route: 065
  6. LITHIUM [Interacting]
     Active Substance: LITHIUM
     Indication: Bipolar disorder
     Dosage: 600 MILLIGRAM, BID
     Route: 065
  7. MIRTAZAPINE [Interacting]
     Active Substance: MIRTAZAPINE
     Indication: Bipolar disorder
     Dosage: 30 MILLIGRAM, QD, AT NIGHT
     Route: 065
  8. CARBAMAZEPINE [Interacting]
     Active Substance: CARBAMAZEPINE
     Indication: Epilepsy
     Dosage: 200 MILLIGRAM, BID
     Route: 065

REACTIONS (6)
  - Toxicity to various agents [Recovered/Resolved]
  - Cardiotoxicity [Recovered/Resolved]
  - Drug interaction [Recovered/Resolved]
  - Defect conduction intraventricular [Recovered/Resolved]
  - Diarrhoea [Recovered/Resolved]
  - Fall [Recovered/Resolved]
